FAERS Safety Report 10048430 (Version 1)
Quarter: 2014Q1

REPORT INFORMATION
  Report Type: Spontaneous
  Country: GB (occurrence: GB)
  Receive Date: 20140331
  Receipt Date: 20140331
  Transmission Date: 20141002
  Serious: Yes (Other)
  Sender: FDA-Public Use
  Company Number: GB-AMGEN-GBRSP2014021819

PATIENT
  Sex: Female

DRUGS (2)
  1. XGEVA [Suspect]
     Indication: BREAST CANCER
     Dosage: UNK
     Route: 065
  2. ADCAL D3 [Concomitant]

REACTIONS (3)
  - Hypocalcaemia [Unknown]
  - Paraesthesia [Unknown]
  - Muscle spasms [Unknown]
